FAERS Safety Report 24163098 (Version 1)
Quarter: 2024Q3

REPORT INFORMATION
  Report Type: Spontaneous
  Country: US (occurrence: US)
  Receive Date: 20240801
  Receipt Date: 20240801
  Transmission Date: 20241017
  Serious: No
  Sender: ARBOR
  Company Number: US-AZURITY PHARMACEUTICALS, INC.-US-2023ARB004881

PATIENT
  Age: 14 Year
  Sex: Male

DRUGS (4)
  1. TRIPTODUR [Suspect]
     Active Substance: TRIPTORELIN
     Indication: Seborrhoea
     Dosage: UNK, SINGLE
     Route: 030
     Dates: start: 202212, end: 202212
  2. TRIPTODUR [Suspect]
     Active Substance: TRIPTORELIN
     Indication: Hair growth abnormal
     Dosage: UNK, SINGLE
     Route: 030
     Dates: start: 202307, end: 202307
  3. TRIPTODUR [Suspect]
     Active Substance: TRIPTORELIN
  4. TRIPTODUR [Suspect]
     Active Substance: TRIPTORELIN

REACTIONS (4)
  - Educational problem [Not Recovered/Not Resolved]
  - Aggression [Unknown]
  - Depression [Unknown]
  - Off label use [Unknown]

NARRATIVE: CASE EVENT DATE: 20221201
